FAERS Safety Report 4776569-4 (Version None)
Quarter: 2005Q3

REPORT INFORMATION
  Report Type: 
  Country: None (occurrence: None)
  Receive Date: 20050923
  Receipt Date: 20050906
  Transmission Date: 20060218
  Serious: Yes (Other)
  Sender: FDA-Public Use
  Company Number: PHEH2005US09939

PATIENT
  Age: 75 Year
  Sex: Female

DRUGS (4)
  1. EVISTA [Concomitant]
  2. PRILOSEC [Concomitant]
  3. PEPCID [Concomitant]
  4. MIACALCIN [Suspect]
     Indication: COMPRESSION FRACTURE
     Dosage: 200 IU, QD
     Route: 045
     Dates: start: 20050221, end: 20050801

REACTIONS (3)
  - ALOPECIA [None]
  - DRUG INEFFECTIVE [None]
  - OPTIC NERVE DISORDER [None]
